FAERS Safety Report 8097725-6 (Version None)
Quarter: 2012Q1

REPORT INFORMATION
  Report Type: 
  Country: None (occurrence: None)
  Receive Date: 20120128
  Receipt Date: 20110712
  Transmission Date: 20120608
  Serious: No
  Sender: FDA-Public Use
  Company Number: US-ABBOTT-11P-163-0839063-00

PATIENT
  Sex: Male
  Weight: 74.91 kg

DRUGS (6)
  1. MEN'S HEALTH MULIVITAMIN [Concomitant]
     Indication: PRODUCT USED FOR UNKNOWN INDICATION
  2. MELOXICAM [Concomitant]
     Indication: PAIN
  3. HUMIRA [Suspect]
     Indication: PSORIATIC ARTHROPATHY
     Route: 058
  4. LISINOPRIL [Concomitant]
     Indication: BLOOD PRESSURE INCREASED
     Route: 058
  5. HYDROCHLOROTHIAZIDE [Concomitant]
     Indication: BLOOD PRESSURE INCREASED
     Route: 058
  6. FISH OIL [Concomitant]
     Indication: BLOOD CHOLESTEROL INCREASED
     Route: 048

REACTIONS (8)
  - ARTHRALGIA [None]
  - MOVEMENT DISORDER [None]
  - JOINT STIFFNESS [None]
  - JOINT SWELLING [None]
  - PAIN IN EXTREMITY [None]
  - RESTLESSNESS [None]
  - MUSCULOSKELETAL STIFFNESS [None]
  - OEDEMA PERIPHERAL [None]
